FAERS Safety Report 5598654-X (Version None)
Quarter: 2008Q1

REPORT INFORMATION
  Report Type: 
  Country: None (occurrence: None)
  Receive Date: 20080122
  Receipt Date: 20080111
  Transmission Date: 20080703
  Serious: Yes (Hospitalization)
  Sender: FDA-Public Use
  Company Number: US-ROCHE-540941

PATIENT
  Age: 74 Year
  Sex: Female
  Weight: 73 kg

DRUGS (6)
  1. CAPECITABINE [Suspect]
     Dosage: LAST DOSE PRIOR TO SAE: 31 MAY 2007
     Route: 048
     Dates: start: 20070518
  2. BLINDED BEVACIZUMAB [Suspect]
     Route: 042
     Dates: start: 20070518
  3. DOXAZOSIN MESYLATE [Concomitant]
  4. DIOVAN [Concomitant]
  5. DOCUSATE [Concomitant]
  6. VITAMIN TAB [Concomitant]

REACTIONS (1)
  - HERPES OESOPHAGITIS [None]
